FAERS Safety Report 4411860-2 (Version None)
Quarter: 2004Q3

REPORT INFORMATION
  Report Type: 
  Country: None (occurrence: None)
  Receive Date: 20040730
  Receipt Date: 20040526
  Transmission Date: 20050211
  Serious: Yes (Hospitalization)
  Sender: FDA-Public Use
  Company Number: JP-MERCK-0405USA02186

PATIENT
  Age: 49 Year
  Sex: Male
  Weight: 62 kg

DRUGS (8)
  1. ECABET SODIUM [Concomitant]
     Route: 065
     Dates: start: 19990101
  2. FLUTICASONE PROPIONATE [Concomitant]
     Route: 065
     Dates: start: 19990101
  3. SINGULAIR [Suspect]
     Indication: ASTHMA
     Route: 048
     Dates: start: 20010201, end: 20020401
  4. PRANLUKAST [Suspect]
     Indication: ASTHMA
     Route: 048
     Dates: start: 20000801, end: 20010201
  5. PROCATEROL HYDROCHLORIDE [Concomitant]
     Route: 065
     Dates: start: 19990101
  6. SUPLATAST TOSYLATE [Concomitant]
     Route: 065
     Dates: start: 19990101, end: 20020701
  7. THEOPHYLLINE [Concomitant]
     Route: 065
     Dates: start: 19990101, end: 20020701
  8. ZAFIRLUKAST [Suspect]
     Indication: ASTHMA
     Route: 048
     Dates: start: 20020401, end: 20020701

REACTIONS (4)
  - ALLERGIC GRANULOMATOUS ANGIITIS [None]
  - ARTHRALGIA [None]
  - ASTHMA [None]
  - CONDITION AGGRAVATED [None]
